FAERS Safety Report 4468630-9 (Version None)
Quarter: 2004Q3

REPORT INFORMATION
  Report Type: 
  Country: None (occurrence: None)
  Receive Date: 20040917
  Receipt Date: 20040525
  Transmission Date: 20050211
  Serious: No
  Sender: FDA-Public Use
  Company Number: US-JNJFOC-20040506393

PATIENT
  Age: 26 Year
  Sex: Female
  Weight: 58.9676 kg

DRUGS (4)
  1. ORTHO EVRA [Suspect]
     Indication: CONTRACEPTION
     Dosage: 1 DOSE(S), 3 IN 4 WEEK, TRANSDERMAL
     Route: 062
     Dates: start: 20020101
  2. DESYRAL (TRAZODONE HYDROCHLORIDE) [Concomitant]
  3. BENADRYL [Concomitant]
  4. ORTHO EVRA [Suspect]
     Dosage: 1 DOSEA(S), 3 IN 4 WEEK, TRANSDERMAL
     Route: 062
     Dates: start: 20020101

REACTIONS (2)
  - APPLICATION SITE REACTION [None]
  - URTICARIA [None]
